FAERS Safety Report 8449923-7 (Version None)
Quarter: 2012Q2

REPORT INFORMATION
  Report Type: 
  Country: None (occurrence: None)
  Receive Date: 20120620
  Receipt Date: 20120613
  Transmission Date: 20120825
  Serious: Yes (Other)
  Sender: FDA-Public Use
  Company Number: PHHY2012DE045278

PATIENT
  Sex: Male

DRUGS (1)
  1. VOLTAREN [Suspect]
     Indication: MUSCULOSKELETAL DISCOMFORT
     Dosage: 75 MG, UNK
     Route: 048
     Dates: start: 20120518, end: 20120520

REACTIONS (2)
  - HAEMORRHOIDS [None]
  - HAEMATOCHEZIA [None]
